FAERS Safety Report 20331031 (Version 1)
Quarter: 2022Q1

REPORT INFORMATION
  Report Type: Spontaneous
  Country: ZA (occurrence: ZA)
  Receive Date: 20220113
  Receipt Date: 20220113
  Transmission Date: 20220423
  Serious: Yes (Other)
  Sender: FDA-Public Use
  Company Number: ZA-SA-SAC20220106000862

PATIENT
  Sex: Female

DRUGS (7)
  1. ARAVA [Suspect]
     Active Substance: LEFLUNOMIDE
     Dosage: 200 MG, QD
     Dates: start: 202005
  2. ARAVA [Suspect]
     Active Substance: LEFLUNOMIDE
  3. KEPPRA [Concomitant]
     Active Substance: LEVETIRACETAM
  4. RIVOTRIL [Concomitant]
     Active Substance: CLONAZEPAM
  5. TEGRETOL [Concomitant]
     Active Substance: CARBAMAZEPINE
  6. VENLAFAXINE HYDROCHLORIDE [Concomitant]
     Active Substance: VENLAFAXINE HYDROCHLORIDE
  7. ROSUVASTATIN [Concomitant]
     Active Substance: ROSUVASTATIN

REACTIONS (2)
  - Seizure [Unknown]
  - Condition aggravated [Unknown]
